FAERS Safety Report 13895177 (Version 2)
Quarter: 2017Q3

REPORT INFORMATION
  Report Type: Spontaneous
  Country: US (occurrence: US)
  Receive Date: 20170823
  Receipt Date: 20170916
  Transmission Date: 20171127
  Serious: Yes (Other)
  Sender: FDA-Public Use
  Company Number: US-AMGEN-USASP2017125775

PATIENT
  Age: 61 Year
  Sex: Female

DRUGS (6)
  1. PLAQUENIL [Concomitant]
     Active Substance: HYDROXYCHLOROQUINE SULFATE
     Indication: PSORIASIS
     Dosage: 200 MG, BID
     Dates: start: 201703
  2. PLAQUENIL [Concomitant]
     Active Substance: HYDROXYCHLOROQUINE SULFATE
     Indication: PSORIATIC ARTHROPATHY
  3. ENBREL [Suspect]
     Active Substance: ETANERCEPT
     Indication: IRRITABLE BOWEL SYNDROME
  4. ENBREL [Suspect]
     Active Substance: ETANERCEPT
     Indication: PSORIASIS
     Dosage: 50 MG, QWK
     Route: 065
     Dates: start: 201703, end: 2017
  5. ENBREL [Suspect]
     Active Substance: ETANERCEPT
     Indication: PSORIATIC ARTHROPATHY
     Dosage: 50 MG, QWK
     Route: 065
     Dates: start: 2017, end: 201708
  6. ENBREL [Suspect]
     Active Substance: ETANERCEPT
     Indication: PUSTULAR PSORIASIS

REACTIONS (12)
  - Injection site rash [Unknown]
  - Injection site erythema [Unknown]
  - Diarrhoea [Unknown]
  - Off label use [Unknown]
  - Pain [Unknown]
  - Injection site urticaria [Unknown]
  - Psoriasis [Unknown]
  - Stevens-Johnson syndrome [Unknown]
  - Anaphylactic reaction [Unknown]
  - Abdominal pain upper [Unknown]
  - Rash [Unknown]
  - Hypersensitivity [Not Recovered/Not Resolved]

NARRATIVE: CASE EVENT DATE: 2017
